FAERS Safety Report 6387839-0 (Version None)
Quarter: 2009Q4

REPORT INFORMATION
  Report Type: 
  Country: None (occurrence: None)
  Receive Date: 20091005
  Receipt Date: 20090923
  Transmission Date: 20100525
  Serious: Yes (Other)
  Sender: FDA-Public Use
  Company Number: CA-PFIZER INC-2009275954

PATIENT
  Age: 47 Year

DRUGS (3)
  1. VIRACEPT [Suspect]
     Indication: HIV INFECTION
     Dosage: 1250 MG, 2X/DAY
     Route: 065
  2. D4T [Suspect]
     Indication: HIV INFECTION
     Dosage: 40 MG, 2X/DAY
     Route: 065
  3. 3-TC [Suspect]
     Indication: HIV INFECTION
     Dosage: 150 MG, 2X/DAY
     Route: 065

REACTIONS (1)
  - ASCITES [None]
